FAERS Safety Report 14539002 (Version 1)
Quarter: 2018Q1

REPORT INFORMATION
  Report Type: Spontaneous
  Country: DE (occurrence: DE)
  Receive Date: 20180216
  Receipt Date: 20180216
  Transmission Date: 20180509
  Serious: Yes (Hospitalization)
  Sender: FDA-Public Use
  Company Number: DE-MERCK KGAA-2042139

PATIENT
  Sex: Female

DRUGS (8)
  1. MUCOFALK ORANGE [Suspect]
     Active Substance: HERBALS\PLANTAGO OVATA LEAF
     Route: 048
     Dates: start: 2017, end: 20171208
  2. ACETYLSALICYLIC ACID [Suspect]
     Active Substance: ASPIRIN
  3. MUCOFALK ORANGE [Suspect]
     Active Substance: HERBALS\PLANTAGO OVATA LEAF
     Dates: start: 20171209, end: 20171209
  4. NEPHROTRANS [Suspect]
     Active Substance: SODIUM BICARBONATE
  5. NOVOTHYROX [Suspect]
     Active Substance: LEVOTHYROXINE SODIUM
     Indication: PRODUCT USED FOR UNKNOWN INDICATION
  6. OSVAREN [Suspect]
     Active Substance: CALCIUM ACETATE\MAGNESIUM CARBONATE
  7. PANTOPRAZOLE [Suspect]
     Active Substance: PANTOPRAZOLE
  8. CORTISONE [Suspect]
     Active Substance: CORTISONE\HYDROCORTISONE

REACTIONS (3)
  - Myalgia [Recovered/Resolved]
  - Asthenia [Recovered/Resolved]
  - Hyperkalaemia [Recovered/Resolved]

NARRATIVE: CASE EVENT DATE: 20171210
